FAERS Safety Report 21389771 (Version 12)
Quarter: 2023Q2

REPORT INFORMATION
  Report Type: Spontaneous
  Country: CA (occurrence: CA)
  Receive Date: 20220929
  Receipt Date: 20230620
  Transmission Date: 20230722
  Serious: Yes (Other)
  Sender: FDA-Public Use
  Company Number: CA-CELLTRION INC.-2022CA010931

PATIENT

DRUGS (10)
  1. INFLECTRA [Suspect]
     Active Substance: INFLIXIMAB-DYYB
     Indication: Colitis ulcerative
     Dosage: 300 MG WEEK 0, 2, 6, THEN EVERY 6 WEEKS
     Route: 042
     Dates: start: 20220805
  2. INFLECTRA [Suspect]
     Active Substance: INFLIXIMAB-DYYB
     Indication: Ankylosing spondylitis
     Dosage: 300 MG WEEK 0, 2, 6, THEN EVERY 6 WEEKS
     Route: 042
     Dates: start: 20220819
  3. INFLECTRA [Suspect]
     Active Substance: INFLIXIMAB-DYYB
     Dosage: 300 MG WEEK 0, 2, 6, THEN EVERY 6 WEEKS
     Route: 042
     Dates: start: 20220916
  4. INFLECTRA [Suspect]
     Active Substance: INFLIXIMAB-DYYB
     Dosage: 300 MG WEEK 0, 2, 6, THEN EVERY 6 WEEKS
     Route: 042
     Dates: start: 20221206
  5. INFLECTRA [Suspect]
     Active Substance: INFLIXIMAB-DYYB
     Dosage: 300 MG WEEK 0, 2, 6, THEN EVERY 6 WEEKS
     Route: 042
     Dates: start: 20230322
  6. INFLECTRA [Suspect]
     Active Substance: INFLIXIMAB-DYYB
     Dosage: 300 MG EVERY 4 WEEK
     Route: 042
     Dates: start: 20230418, end: 20230418
  7. INFLECTRA [Suspect]
     Active Substance: INFLIXIMAB-DYYB
     Dosage: 300 MG EVERY 4 WEEKS
     Route: 042
     Dates: start: 20230516, end: 2023
  8. CIPROFLOXACIN HYDROCHLORIDE [Concomitant]
     Active Substance: CIPROFLOXACIN HYDROCHLORIDE
     Dosage: 15 MG
     Route: 048
     Dates: start: 20220301
  9. CYMBALTA [Concomitant]
     Active Substance: DULOXETINE HYDROCHLORIDE
     Indication: Depression
     Dosage: UNK
  10. MESALAMINE [Concomitant]
     Active Substance: MESALAMINE
     Dosage: 4800 MG
     Route: 048
     Dates: start: 20190801

REACTIONS (12)
  - Weight fluctuation [Not Recovered/Not Resolved]
  - Oxygen saturation decreased [Recovered/Resolved]
  - Dyspnoea [Recovered/Resolved]
  - Erythema [Recovered/Resolved]
  - Headache [Not Recovered/Not Resolved]
  - Dizziness [Not Recovered/Not Resolved]
  - Infusion related reaction [Unknown]
  - Nervousness [Not Recovered/Not Resolved]
  - Off label use [Unknown]
  - Off label use [Unknown]
  - Off label use [Unknown]
  - Intentional product use issue [Unknown]

NARRATIVE: CASE EVENT DATE: 20220819
